FAERS Safety Report 8187962-4 (Version None)
Quarter: 2012Q1

REPORT INFORMATION
  Report Type: 
  Country: None (occurrence: None)
  Receive Date: 20120306
  Receipt Date: 20120301
  Transmission Date: 20120608
  Serious: Yes (Other)
  Sender: FDA-Public Use
  Company Number: IT-GLAXOSMITHKLINE-B0786028A

PATIENT

DRUGS (1)
  1. REQUIP [Suspect]
     Indication: PRODUCT USED FOR UNKNOWN INDICATION
     Route: 065

REACTIONS (10)
  - FATIGUE [None]
  - DEFAECATION URGENCY [None]
  - DYSKINESIA [None]
  - DYSTONIA [None]
  - MUSCLE SPASMS [None]
  - PRODUCT QUALITY ISSUE [None]
  - DYSPNOEA [None]
  - MICTURITION URGENCY [None]
  - MEDICATION RESIDUE [None]
  - CONSTIPATION [None]
